FAERS Safety Report 8991504 (Version 1)
Quarter: 2012Q4

REPORT INFORMATION
  Report Type: 
  Country: US (occurrence: US)
  Receive Date: 20121231
  Receipt Date: 20121231
  Transmission Date: 20130627
  Serious: Yes (Hospitalization)
  Sender: FDA-Public Use
  Company Number: US-BIOGENIDEC-2012BI063849

PATIENT
  Age: 60 Year
  Sex: Male

DRUGS (2)
  1. AVONEX [Suspect]
     Indication: MULTIPLE SCLEROSIS
     Route: 030
     Dates: start: 20000901, end: 2003
  2. AVONEX [Suspect]
     Indication: MULTIPLE SCLEROSIS
     Route: 030
     Dates: start: 2003

REACTIONS (6)
  - Procedural haemorrhage [Recovered/Resolved]
  - Dysuria [Not Recovered/Not Resolved]
  - Neuralgia [Recovered/Resolved]
  - Sweat gland disorder [Recovered/Resolved]
  - Gait disturbance [Not Recovered/Not Resolved]
  - Poor peripheral circulation [Recovered/Resolved]
